FAERS Safety Report 6319483-5 (Version None)
Quarter: 2009Q3

REPORT INFORMATION
  Report Type: 
  Country: None (occurrence: None)
  Receive Date: 20090822
  Receipt Date: 20080923
  Transmission Date: 20100115
  Serious: No
  Sender: FDA-Public Use
  Company Number: US-ABBOTT-08P-163-0475070-00

PATIENT
  Sex: Male
  Weight: 74.456 kg

DRUGS (4)
  1. NIASPAN [Suspect]
     Indication: BLOOD CHOLESTEROL INCREASED
     Dosage: 1000MG AT BEDTIME
     Route: 048
     Dates: start: 20080701
  2. OLMESARTAN MEDOXOMIL [Concomitant]
     Indication: HYPERTENSION
  3. ASPIRIN [Concomitant]
     Indication: PROPHYLAXIS
     Dosage: BEFORE NIASPAN
  4. ASPIRIN [Concomitant]
     Indication: FLUSHING

REACTIONS (2)
  - ARTHRALGIA [None]
  - FATIGUE [None]
